FAERS Safety Report 7490947-4 (Version None)
Quarter: 2011Q2

REPORT INFORMATION
  Report Type: 
  Country: None (occurrence: None)
  Receive Date: 20110519
  Receipt Date: 20110504
  Transmission Date: 20111010
  Serious: No
  Sender: FDA-Public Use
  Company Number: US-B.I. PHARMACEUTICALS,INC./RIDGEFIELD-2011-BP-08448BP

PATIENT
  Sex: Female

DRUGS (9)
  1. SPIRIVA [Suspect]
     Indication: EMPHYSEMA
     Dosage: 18 MCG
     Route: 055
     Dates: start: 20090101
  2. MVI + CA [Concomitant]
     Indication: PROPHYLAXIS
     Route: 048
  3. SYMBICORT [Concomitant]
     Indication: EMPHYSEMA
     Route: 055
  4. PROAIR HFA [Concomitant]
     Indication: EMPHYSEMA
     Route: 055
     Dates: start: 20090101
  5. BUPROPION HCL [Concomitant]
  6. LISINOPRIL [Concomitant]
     Indication: HYPERTENSION
     Route: 048
     Dates: start: 20090101
  7. WELLBUTRIN SR [Concomitant]
     Indication: DEPRESSION
     Route: 048
     Dates: start: 20090101
  8. ALPRAZOLAM [Concomitant]
  9. FLUTICASONE PROPIONATE [Concomitant]

REACTIONS (2)
  - ANXIETY [None]
  - DYSPNOEA [None]
